FAERS Safety Report 9409513 (Version 1)
Quarter: 2013Q3

REPORT INFORMATION
  Report Type: Spontaneous
  Country: BR (occurrence: BR)
  Receive Date: 20130719
  Receipt Date: 20130719
  Transmission Date: 20140515
  Serious: Yes (Hospitalization)
  Sender: FDA-Public Use
  Company Number: BR-PFIZER INC-2013205857

PATIENT
  Age: 88 Year
  Sex: Female
  Weight: 58 kg

DRUGS (3)
  1. CELEBRA [Suspect]
     Indication: FALL
     Dosage: EVERY 12 HOURS
     Dates: start: 20130708
  2. SIMVASTATIN [Concomitant]
     Dosage: 1 (20 MG) CAPSULE AFTER DINNER 3X/WEEK
  3. AAS INFANTIL [Concomitant]
     Dosage: 2 (100 MG) TABLETS AFTER BREAKFAST

REACTIONS (3)
  - Bone lesion [Unknown]
  - Drug ineffective [Not Recovered/Not Resolved]
  - Pain [Not Recovered/Not Resolved]
